FAERS Safety Report 20236035 (Version 2)
Quarter: 2022Q1

REPORT INFORMATION
  Report Type: Spontaneous
  Country: DK (occurrence: DK)
  Receive Date: 20211228
  Receipt Date: 20220107
  Transmission Date: 20220423
  Serious: Yes (Other)
  Sender: FDA-Public Use
  Company Number: DK-ENDO PHARMACEUTICALS INC-2021-013824

PATIENT
  Age: 83 Year
  Sex: Male

DRUGS (1)
  1. AVEED [Suspect]
     Active Substance: TESTOSTERONE UNDECANOATE
     Indication: Hypogonadism male
     Dosage: 1000 MG, UNKNOWN (4 INJECTIONS WITHIN 6 MONTHS)
     Route: 030

REACTIONS (2)
  - Metastases to bone [Recovered/Resolved]
  - Prostate cancer metastatic [Unknown]
